FAERS Safety Report 4569749-4 (Version None)
Quarter: 2005Q1

REPORT INFORMATION
  Report Type: 
  Country: None (occurrence: None)
  Receive Date: 20050131
  Receipt Date: 20050115
  Transmission Date: 20050727
  Serious: Yes (Hospitalization)
  Sender: FDA-Public Use
  Company Number: 8008542

PATIENT
  Age: 6 Year
  Sex: Male
  Weight: 51.36 kg

DRUGS (5)
  1. KEPPRA [Suspect]
     Indication: PARTIAL SEIZURES
     Dosage: 125 MG 2/D PO
     Route: 048
     Dates: start: 20040801, end: 20040101
  2. KEPPRA [Suspect]
     Indication: PARTIAL SEIZURES
     Dosage: 250 MG 2/D PO
     Route: 048
     Dates: start: 20040101, end: 20040101
  3. KEPPRA [Suspect]
     Indication: PARTIAL SEIZURES
     Dosage: 750 MG 2/D PO
     Route: 048
     Dates: start: 20040101, end: 20040101
  4. KEPPRA [Suspect]
     Indication: PARTIAL SEIZURES
     Dosage: 500 MG 2/D PO
     Route: 048
     Dates: start: 20040101, end: 20050113
  5. TOPAMAX [Concomitant]

REACTIONS (4)
  - ABNORMAL BEHAVIOUR [None]
  - BODY TEMPERATURE INCREASED [None]
  - HEADACHE [None]
  - VIRAL MYOSITIS [None]
